FAERS Safety Report 11063792 (Version 1)
Quarter: 2015Q2

REPORT INFORMATION
  Report Type: Spontaneous
  Country: US (occurrence: US)
  Receive Date: 20150424
  Receipt Date: 20150424
  Transmission Date: 20150821
  Serious: No
  Sender: FDA-Public Use
  Company Number: US-TARO-2014TAR00591

PATIENT
  Age: 88 Year
  Sex: Female
  Weight: 82.99 kg

DRUGS (17)
  1. CARDIZEM ^AL^ [Concomitant]
     Dosage: 240 MG, UNK
  2. MIDODRINE [Concomitant]
     Active Substance: MIDODRINE
     Dosage: 5 MG, 3X/DAY
  3. LASIX [Concomitant]
     Active Substance: FUROSEMIDE
     Dosage: 20 MG, UNK
  4. CRESTOR [Concomitant]
     Active Substance: ROSUVASTATIN CALCIUM
     Dosage: 20 MG, UNK
  5. UNSPECIFIED OTC HIGH CHOLESTEROL MEDICATION [Concomitant]
  6. ATIVAN [Concomitant]
     Active Substance: LORAZEPAM
     Dosage: UNK, AS NEEDED
  7. PRESERVISION [Concomitant]
     Active Substance: MINERALS\VITAMINS
  8. TOPROL XL [Concomitant]
     Active Substance: METOPROLOL SUCCINATE
     Dosage: 25 MG, UNK
  9. FLOVENT [Concomitant]
     Active Substance: FLUTICASONE PROPIONATE
  10. NEXIUM [Concomitant]
     Active Substance: ESOMEPRAZOLE MAGNESIUM
     Dosage: 40 MG, UNK
  11. UNSPECIFIED EYE OINTMENTS [Concomitant]
  12. BABY ASPIRIN [Concomitant]
     Active Substance: ASPIRIN
  13. CALCIUM [Concomitant]
     Active Substance: CALCIUM
  14. FLUOROURACIL TOPICAL CREAM USP 5% [Suspect]
     Active Substance: FLUOROURACIL
     Indication: MALIGNANT MELANOMA
     Dosage: UNK UNK, 1X/DAY
     Route: 061
     Dates: start: 20141111, end: 20141125
  15. MINDOR [Concomitant]
     Dosage: 30 MG, UNK
  16. POTASSIUM [Concomitant]
     Active Substance: POTASSIUM
  17. UNSPECIFIED EYE DROPS [Concomitant]
     Active Substance: UNSPECIFIED INGREDIENT

REACTIONS (8)
  - Gingival pain [Recovered/Resolved]
  - Lip pain [Recovered/Resolved]
  - Application site erythema [Recovered/Resolved]
  - Rhinorrhoea [Unknown]
  - Nasopharyngitis [Unknown]
  - Neoplasm skin [Recovered/Resolved]
  - Oral pain [Recovered/Resolved]
  - Application site pain [Recovered/Resolved]

NARRATIVE: CASE EVENT DATE: 20141124
